FAERS Safety Report 12422186 (Version 3)
Quarter: 2016Q3

REPORT INFORMATION
  Report Type: Spontaneous
  Country: FR (occurrence: FR)
  Receive Date: 20160601
  Receipt Date: 20160727
  Transmission Date: 20161109
  Serious: Yes (Hospitalization)
  Sender: FDA-Public Use
  Company Number: PHHY2016FR073141

PATIENT
  Age: 65 Year
  Sex: Male

DRUGS (2)
  1. PACLITAXEL EBEWE [Suspect]
     Active Substance: PACLITAXEL
     Indication: OESOPHAGEAL ADENOCARCINOMA
     Dosage: 6 MG/ML, CYCLIC
     Route: 042
     Dates: start: 20160203, end: 20160406
  2. CYRAMZA [Suspect]
     Active Substance: RAMUCIRUMAB
     Indication: OESOPHAGEAL ADENOCARCINOMA
     Route: 042
     Dates: start: 20160203, end: 20160330

REACTIONS (3)
  - Thrombotic microangiopathy [Not Recovered/Not Resolved]
  - Haemolytic uraemic syndrome [Not Recovered/Not Resolved]
  - Glomerulonephropathy [Not Recovered/Not Resolved]

NARRATIVE: CASE EVENT DATE: 201604
